FAERS Safety Report 11262559 (Version 1)
Quarter: 2015Q3

REPORT INFORMATION
  Report Type: Spontaneous
  Country: GB (occurrence: GB)
  Receive Date: 20150710
  Receipt Date: 20150710
  Transmission Date: 20151125
  Serious: Yes (Other)
  Sender: FDA-Public Use
  Company Number: GB-BAUSCH-BL-2015-016624

PATIENT
  Age: 58 Year
  Sex: Male

DRUGS (1)
  1. METRONIDAZOLE. [Suspect]
     Active Substance: METRONIDAZOLE
     Indication: GINGIVITIS
     Route: 048
     Dates: start: 20150529, end: 20150604

REACTIONS (4)
  - Prostatitis [Recovering/Resolving]
  - Pyrexia [Recovering/Resolving]
  - Urethral haemorrhage [Recovering/Resolving]
  - Genitourinary tract gonococcal infection [Recovering/Resolving]

NARRATIVE: CASE EVENT DATE: 20150606
